FAERS Safety Report 4503099-7 (Version None)
Quarter: 2004Q4

REPORT INFORMATION
  Report Type: 
  Country: None (occurrence: None)
  Receive Date: 20041117
  Receipt Date: 20041029
  Transmission Date: 20050328
  Serious: Yes (Hospitalization)
  Sender: FDA-Public Use
  Company Number: JP-ROCHE-385010

PATIENT
  Age: 54 Year
  Sex: Male

DRUGS (7)
  1. PEGASYS [Suspect]
     Route: 058
     Dates: start: 20040216, end: 20040812
  2. NU-LOTAN [Concomitant]
     Route: 048
     Dates: start: 20040214, end: 20040812
  3. MAINTATE [Concomitant]
     Route: 048
     Dates: start: 20040214, end: 20040601
  4. LOPEMIN [Concomitant]
     Route: 048
     Dates: start: 20040227, end: 20040826
  5. BIOFERMIN [Concomitant]
     Route: 048
     Dates: start: 20040511, end: 20040812
  6. ALBUMIN TANNATE [Concomitant]
     Route: 048
     Dates: start: 20040511, end: 20040812
  7. ADSORBIN [Concomitant]
     Route: 048
     Dates: start: 20040511, end: 20040812

REACTIONS (11)
  - ANAEMIA [None]
  - ANOREXIA [None]
  - CACHEXIA [None]
  - DEHYDRATION [None]
  - DEPRESSED LEVEL OF CONSCIOUSNESS [None]
  - HYPOTENSION [None]
  - MALAISE [None]
  - PLATELET COUNT DECREASED [None]
  - PLEURAL EFFUSION [None]
  - PYREXIA [None]
  - RENAL DISORDER [None]
